FAERS Safety Report 23813180 (Version 1)
Quarter: 2024Q2

REPORT INFORMATION
  Report Type: Spontaneous
  Country: US (occurrence: US)
  Receive Date: 20240503
  Receipt Date: 20240503
  Transmission Date: 20240716
  Serious: Yes (Hospitalization, Other)
  Sender: FDA-Public Use
  Company Number: US-AMNEAL PHARMACEUTICALS-2024-AMRX-00834

PATIENT
  Sex: Female
  Weight: 20.499 kg

DRUGS (1)
  1. VIGABATRIN [Suspect]
     Active Substance: VIGABATRIN
     Indication: Seizure
     Dosage: MIX 3 PACKETS IN 30 ML OF WATER AND GIVE/TAKE 29 ML (1450 MG) PER G TUBE ROUTE, 2 /DAY, DISCARD UNUS
     Route: 048

REACTIONS (1)
  - Seizure [Unknown]
